FAERS Safety Report 17395981 (Version 1)
Quarter: 2020Q1

REPORT INFORMATION
  Report Type: Spontaneous
  Country: GB (occurrence: GB)
  Receive Date: 20200210
  Receipt Date: 20200210
  Transmission Date: 20200409
  Serious: Yes (Hospitalization)
  Sender: FDA-Public Use
  Company Number: GB-MYLANLABS-2020M1013550

PATIENT
  Age: 78 Year

DRUGS (10)
  1. INDAPAMIDE. [Concomitant]
     Active Substance: INDAPAMIDE
     Dosage: 2.5 MILLIGRAM, QD (MORNING)
  2. BUTEC [Concomitant]
     Active Substance: BUPRENORPHINE
     Dosage: UNK (APPLY ONE PATCH EACH WEEK AS DIRECTED. REMOVE OLD PATCH BEFORE APPLYING NEW PATCH TWO)
     Route: 062
     Dates: start: 20190604
  3. OMEPRAZOLE. [Concomitant]
     Active Substance: OMEPRAZOLE
     Dosage: 20 MILLIGRAM, QD
     Dates: start: 20190528
  4. DEXAMETHASONE. [Concomitant]
     Active Substance: DEXAMETHASONE
     Dosage: 500 MICROGRAM, QD
     Dates: start: 20190528
  5. DERMOL                             /01330701/ [Concomitant]
     Dosage: UNK
  6. BALNEUM PLUS                       /01148801/ [Concomitant]
     Dosage: 2 DOSAGE FORM, QD
     Dates: start: 20190322
  7. BUPRENORPHINE. [Suspect]
     Active Substance: BUPRENORPHINE
     Indication: PRODUCT USED FOR UNKNOWN INDICATION
     Dosage: 5 MICROGRAMS/HOUR
     Route: 062
  8. PERINDOPRIL TERT-BUTYLAMINE [Concomitant]
     Active Substance: PERINDOPRIL ERBUMINE
     Dosage: 8 MILLIGRAM, QD
     Dates: start: 20190411
  9. ATORVASTATIN [Concomitant]
     Active Substance: ATORVASTATIN
     Dosage: 20 MILLIGRAM, QD (AT NIGHT)
     Dates: start: 20190603
  10. TRIPTORELIN [Concomitant]
     Active Substance: TRIPTORELIN
     Dosage: 11.25 MILLIGRAM, MONTHLY
     Route: 030

REACTIONS (1)
  - Syncope [Unknown]
